FAERS Safety Report 5495454-6 (Version None)
Quarter: 2007Q4

REPORT INFORMATION
  Report Type: 
  Country: None (occurrence: None)
  Receive Date: 20071023
  Receipt Date: 20071009
  Transmission Date: 20080405
  Serious: Yes (Other)
  Sender: FDA-Public Use
  Company Number: FEI2007-0344

PATIENT
  Age: 30 Year
  Sex: Female
  Weight: 109.3169 kg

DRUGS (8)
  1. INTRAUTERINE COPPER CONTRACEPTIVE [Suspect]
     Indication: CONTRACEPTION
     Dosage: INTRA-UTERINE
     Route: 015
     Dates: start: 20060621, end: 20070123
  2. MACROBID [Concomitant]
  3. COUMADIN [Concomitant]
  4. HEPARIN [Concomitant]
  5. ASPIRIN [Concomitant]
  6. AMBIEN [Concomitant]
  7. LOVENOX [Concomitant]
  8. PRIMACARE ONE (PRIMACARE) [Concomitant]

REACTIONS (5)
  - CAESAREAN SECTION [None]
  - INTRA-UTERINE CONTRACEPTIVE DEVICE EXPELLED [None]
  - PREGNANCY WITH CONTRACEPTIVE DEVICE [None]
  - URINARY TRACT INFECTION [None]
  - VENOUS THROMBOSIS LIMB [None]
